FAERS Safety Report 6717517-7 (Version None)
Quarter: 2010Q2

REPORT INFORMATION
  Report Type: 
  Country: None (occurrence: None)
  Receive Date: 20100510
  Receipt Date: 20100501
  Transmission Date: 20101027
  Serious: Yes (Other)
  Sender: FDA-Public Use
  Company Number: US-SANOFI-AVENTIS-2010SA025730

PATIENT
  Age: 72 Year
  Sex: Female

DRUGS (4)
  1. LANTUS [Suspect]
     Indication: DIABETES MELLITUS
     Dosage: DOSE:9 UNIT(S)
     Route: 058
     Dates: start: 20090101
  2. SOLOSTAR [Suspect]
     Dates: start: 20090101
  3. APIDRA [Suspect]
     Dosage: 2-3 TIMES PER DAY PER SLIDING SCALE
     Route: 058
     Dates: start: 20090101
  4. SOLOSTAR [Suspect]
     Dates: start: 20090101

REACTIONS (2)
  - FALL [None]
  - MENISCUS LESION [None]
